FAERS Safety Report 14214860 (Version 1)
Quarter: 2017Q4

REPORT INFORMATION
  Report Type: Spontaneous
  Country: US (occurrence: US)
  Receive Date: 20171122
  Receipt Date: 20171122
  Transmission Date: 20180321
  Serious: No
  Sender: FDA-Public Use
  Company Number: US-JNJFOC-20171009241

PATIENT
  Age: 35 Year
  Sex: Female
  Weight: 49.9 kg

DRUGS (1)
  1. NIZORAL A-D [Suspect]
     Active Substance: KETOCONAZOLE
     Indication: DANDRUFF
     Dosage: NICKEL SIZE 2-3 A WEEK; STARTED IN MARCH
     Route: 061
     Dates: start: 201703

REACTIONS (1)
  - Drug ineffective [Unknown]
